FAERS Safety Report 6659928-4 (Version None)
Quarter: 2010Q1

REPORT INFORMATION
  Report Type: 
  Country: None (occurrence: None)
  Receive Date: 20100330
  Receipt Date: 20100323
  Transmission Date: 20100710
  Serious: Yes (Hospitalization, Other)
  Sender: FDA-Public Use
  Company Number: US-BRISTOL-MYERS SQUIBB COMPANY-13693379

PATIENT
  Age: 8 Year
  Sex: Female
  Weight: 28 kg

DRUGS (2)
  1. IXEMPRA KIT [Suspect]
     Indication: NEOPLASM
     Dosage: TOTAL DOSE:31.2MG(09FEB07);39MG(19JAN07);8MG/M2IVOVER1HRQD ON DAYS 1-5;CYC:21D;INF STOP'D FOR 30MIN
     Route: 042
     Dates: start: 20070115, end: 20070119
  2. DEXAMETHASONE [Suspect]

REACTIONS (3)
  - ABDOMINAL PAIN [None]
  - HYPERSENSITIVITY [None]
  - LYMPHOPENIA [None]
